FAERS Safety Report 20846760 (Version 2)
Quarter: 2023Q1

REPORT INFORMATION
  Report Type: Report from Study
  Country: US (occurrence: US)
  Receive Date: 20220519
  Receipt Date: 20230128
  Transmission Date: 20230417
  Serious: Yes (Other)
  Sender: FDA-Public Use
  Company Number: US-ABBVIE-22K-163-4399808-00

PATIENT
  Sex: Female

DRUGS (3)
  1. RINVOQ [Suspect]
     Active Substance: UPADACITINIB
     Indication: Rheumatoid arthritis
     Route: 048
  2. RINVOQ [Suspect]
     Active Substance: UPADACITINIB
     Indication: Rheumatoid arthritis
     Route: 048
  3. MODERNA COVID-19 VACCINE [Concomitant]
     Active Substance: ELASOMERAN
     Indication: COVID-19 immunisation
     Dosage: TIME INTERVAL: 1 TOTAL: COVID VACCINE
     Route: 030

REACTIONS (7)
  - Wrist surgery [Recovering/Resolving]
  - Arthralgia [Recovering/Resolving]
  - Nodule [Recovering/Resolving]
  - Carpal tunnel syndrome [Unknown]
  - Arthritis [Recovering/Resolving]
  - Tendonitis [Unknown]
  - Muscular weakness [Unknown]

NARRATIVE: CASE EVENT DATE: 20210101
